FAERS Safety Report 8231770-2 (Version None)
Quarter: 2012Q1

REPORT INFORMATION
  Report Type: 
  Country: None (occurrence: None)
  Receive Date: 20120323
  Receipt Date: 20120309
  Transmission Date: 20120608
  Serious: Yes (Other)
  Sender: FDA-Public Use
  Company Number: AU-WATSON-2012-05129

PATIENT
  Age: 16 Year
  Sex: Male

DRUGS (3)
  1. FLUOXETINE HCL [Suspect]
     Indication: DEPRESSION
     Dosage: 60 MG, DAILY
     Route: 048
  2. SERTRALINE HYDROCHLORIDE [Suspect]
     Indication: DEPRESSION
     Dosage: UNK
     Route: 048
  3. VALPROATE SODIUM [Suspect]
     Indication: DEPRESSION
     Dosage: 1000 MG, DAILY
     Route: 048

REACTIONS (9)
  - DRUG INTERACTION [None]
  - AGGRESSION [None]
  - INTENTIONAL SELF-INJURY [None]
  - PALPITATIONS [None]
  - AKATHISIA [None]
  - TREMOR [None]
  - HOMICIDE [None]
  - OBSESSIVE-COMPULSIVE DISORDER [None]
  - SUICIDE ATTEMPT [None]
